FAERS Safety Report 5751037-1 (Version None)
Quarter: 2008Q2

REPORT INFORMATION
  Report Type: 
  Country: None (occurrence: None)
  Receive Date: 20080528
  Receipt Date: 20080519
  Transmission Date: 20081010
  Serious: Yes (Life-Threatening, Hospitalization)
  Sender: FDA-Public Use
  Company Number: KR-AVENTIS-200812325EU

PATIENT

DRUGS (1)
  1. DOXYLAMINE SUCCINATE [Suspect]
     Dosage: DOSE: 28.4 MORE OR LESS 19.0 MG/KG IN BODY WEIGHT, RANGING FROM 10.9 TO 82.0 MG/KG.

REACTIONS (3)
  - OVERDOSE [None]
  - RENAL FAILURE [None]
  - RHABDOMYOLYSIS [None]
